FAERS Safety Report 4274595-5 (Version None)
Quarter: 2004Q1

REPORT INFORMATION
  Report Type: 
  Country: None (occurrence: None)
  Receive Date: 20040115
  Receipt Date: 20040108
  Transmission Date: 20041129
  Serious: Yes (Other)
  Sender: FDA-Public Use
  Company Number: 2004-01-0378

PATIENT
  Age: 42 Year
  Sex: Female

DRUGS (11)
  1. PROVENTIL [Suspect]
     Dosage: ORAL AER INH
     Route: 055
  2. BECLOMETHASONE DIPROPIONATE [Suspect]
  3. ECHINACEA EXTRACT [Suspect]
  4. ADALAT [Suspect]
  5. BENDROFLUAZIDE [Suspect]
  6. CODEINE [Suspect]
  7. DICLOFENAC SODIUM [Suspect]
  8. DOTHIEPIN HYDROCHLORIDE [Suspect]
  9. DOXAPRAM HCL [Suspect]
  10. IRON [Suspect]
  11. TRANEXAMIC ACID [Suspect]

REACTIONS (2)
  - COAGULOPATHY [None]
  - DRUG INTERACTION [None]
